FAERS Safety Report 23509490 (Version 2)
Quarter: 2024Q1

REPORT INFORMATION
  Report Type: Other
  Country: US (occurrence: US)
  Receive Date: 20240210
  Receipt Date: 20240311
  Transmission Date: 20240410
  Serious: No
  Sender: FDA-Public Use
  Company Number: US-TRAVERE-2024TVT00075

PATIENT
  Sex: Male
  Weight: 100.83 kg

DRUGS (11)
  1. FILSPARI [Suspect]
     Active Substance: SPARSENTAN
     Indication: IgA nephropathy
     Route: 048
     Dates: start: 20231223
  2. TARPEYO [Concomitant]
     Active Substance: BUDESONIDE
  3. EZETIMIBE [Concomitant]
     Active Substance: EZETIMIBE
  4. ATORVASTATIN CALCIUM [Concomitant]
     Active Substance: ATORVASTATIN CALCIUM
  5. ACETAMINOPHEN [Concomitant]
     Active Substance: ACETAMINOPHEN
  6. FLUTICASONE PROPIONATE [Concomitant]
     Active Substance: FLUTICASONE PROPIONATE
  7. FARXIGA [Concomitant]
     Active Substance: DAPAGLIFLOZIN PROPANEDIOL
  8. ALLOPURINOL [Concomitant]
     Active Substance: ALLOPURINOL
  9. CHLORTHALIDONE [Concomitant]
     Active Substance: CHLORTHALIDONE
  10. CLONIDINE HYDROCHLORIDE [Concomitant]
     Active Substance: CLONIDINE HYDROCHLORIDE
  11. ASPIRIN [Concomitant]
     Active Substance: ASPIRIN

REACTIONS (4)
  - Headache [Unknown]
  - Liver function test abnormal [Unknown]
  - Peripheral swelling [Unknown]
  - Hypertension [Unknown]
